FAERS Safety Report 10508762 (Version 3)
Quarter: 2015Q3

REPORT INFORMATION
  Report Type: Spontaneous
  Country: CA (occurrence: CA)
  Receive Date: 20141009
  Receipt Date: 20150813
  Transmission Date: 20151125
  Serious: Yes (Hospitalization)
  Sender: FDA-Public Use
  Company Number: CA-SYMPLMED PHARMACEUTICALS-2014SYM00116

PATIENT
  Age: 66 Year
  Sex: Female
  Weight: 68 kg

DRUGS (2)
  1. ACEON [Suspect]
     Active Substance: PERINDOPRIL ERBUMINE
     Indication: PRODUCT USED FOR UNKNOWN INDICATION
     Dosage: UNK
  2. REMICADE [Suspect]
     Active Substance: INFLIXIMAB
     Indication: ANKYLOSING SPONDYLITIS
     Dosage: 400 MG, EVERY 8 WEEKS
     Route: 042

REACTIONS (11)
  - Crohn^s disease [Unknown]
  - Post procedural complication [Unknown]
  - Procedural site reaction [Unknown]
  - Ileus [Unknown]
  - Hypersensitivity [Unknown]
  - Abdominal hernia [Unknown]
  - Pulmonary oedema [Unknown]
  - Intestinal obstruction [Unknown]
  - Generalised oedema [Unknown]
  - Abdominal adhesions [Unknown]
  - Gallbladder operation [Unknown]

NARRATIVE: CASE EVENT DATE: 2014
